FAERS Safety Report 4798177-1 (Version None)
Quarter: 2005Q4

REPORT INFORMATION
  Report Type: 
  Country: None (occurrence: None)
  Receive Date: 20051011
  Receipt Date: 20050927
  Transmission Date: 20060501
  Serious: Yes (Hospitalization, Other)
  Sender: FDA-Public Use
  Company Number: 2005134880

PATIENT
  Sex: Female
  Weight: 65.7716 kg

DRUGS (4)
  1. ZOLOFT [Suspect]
     Indication: DEPRESSION
     Dosage: 50 MG (50 MG, 1 IN 1 D), ORAL
     Route: 048
     Dates: start: 20041101, end: 20050701
  2. ANTI-ACNE PREPARATIONS (ANTI-ACNE PREPARTONS) [Concomitant]
  3. SYNTHROID [Concomitant]
  4. MINOCYCLINE HCL [Concomitant]

REACTIONS (5)
  - CONVULSION [None]
  - DYSKINESIA [None]
  - MOVEMENT DISORDER [None]
  - STRESS [None]
  - TARDIVE DYSKINESIA [None]
